FAERS Safety Report 17621006 (Version 1)
Quarter: 2020Q2

REPORT INFORMATION
  Report Type: Spontaneous
  Country: US (occurrence: US)
  Receive Date: 20200403
  Receipt Date: 20200403
  Transmission Date: 20200713
  Serious: No
  Sender: FDA-Public Use
  Company Number: US-SHIRE-US202012049

PATIENT
  Sex: Female
  Weight: 60.77 kg

DRUGS (2)
  1. VYVANSE [Suspect]
     Active Substance: LISDEXAMFETAMINE DIMESYLATE
     Indication: ATTENTION DEFICIT HYPERACTIVITY DISORDER
     Dosage: 50 MILLIGRAM, 1X/DAY:QD
     Route: 048
  2. TIZANIDINE. [Concomitant]
     Active Substance: TIZANIDINE
     Indication: PRODUCT USED FOR UNKNOWN INDICATION

REACTIONS (8)
  - Impaired driving ability [Unknown]
  - Loss of personal independence in daily activities [Unknown]
  - Product physical issue [Unknown]
  - Migraine [Unknown]
  - Job dissatisfaction [Unknown]
  - Drug ineffective [Unknown]
  - Poor quality product administered [Unknown]
  - Product contamination [Unknown]
